FAERS Safety Report 9482361 (Version 3)
Quarter: 2013Q4

REPORT INFORMATION
  Report Type: Report from Study
  Country: US (occurrence: US)
  Receive Date: 20130828
  Receipt Date: 20131212
  Transmission Date: 20140711
  Serious: Yes (Other)
  Sender: FDA-Public Use
  Company Number: US-SANOFI-AVENTIS-2013SA085259

PATIENT
  Sex: Male

DRUGS (1)
  1. AUBAGIO [Suspect]
     Route: 048
     Dates: start: 20130319, end: 201305

REACTIONS (2)
  - Post procedural infection [Unknown]
  - Lumbar spinal stenosis [Unknown]
